FAERS Safety Report 21982253 (Version 4)
Quarter: 2023Q1

REPORT INFORMATION
  Report Type: Report from Study
  Country: NG (occurrence: NG)
  Receive Date: 20230213
  Receipt Date: 20230224
  Transmission Date: 20230417
  Serious: Yes (Hospitalization)
  Sender: FDA-Public Use
  Company Number: NG-GBT-019983

PATIENT
  Age: 38 Year
  Sex: Female
  Weight: 71.1 kg

DRUGS (1)
  1. PLACEBO [Suspect]
     Active Substance: UNSPECIFIED INGREDIENT
     Indication: Sickle cell disease
     Dosage: 2091 MG IN 250 ML 0.9% SODIUM CHLORIDE, INFUSION RATE: 250 ML/HR, PLANNED DOSAGE STRENGTH 30 MG/KG.
     Dates: start: 20221018, end: 20221018

REACTIONS (1)
  - Anaemia [Recovered/Resolved]

NARRATIVE: CASE EVENT DATE: 20221021
